FAERS Safety Report 18037437 (Version 2)
Quarter: 2020Q3

REPORT INFORMATION
  Report Type: Spontaneous
  Country: US (occurrence: US)
  Receive Date: 20200717
  Receipt Date: 20200729
  Transmission Date: 20201103
  Serious: No
  Sender: FDA-Public Use
  Company Number: US-TEVA-2020-US-1801617

PATIENT
  Age: 64 Year
  Sex: Male

DRUGS (2)
  1. FLUVOXAMINE [Concomitant]
     Active Substance: FLUVOXAMINE
     Dosage: 1 PER NIGHT
     Dates: start: 20200721
  2. CLONAZEPAM TEVA [Suspect]
     Active Substance: CLONAZEPAM
     Indication: ANXIETY
     Route: 065
     Dates: start: 202005

REACTIONS (3)
  - Product substitution issue [Unknown]
  - Therapeutic product effect decreased [Unknown]
  - Panic attack [Unknown]

NARRATIVE: CASE EVENT DATE: 202005
